FAERS Safety Report 6832146-2 (Version None)
Quarter: 2010Q3

REPORT INFORMATION
  Report Type: 
  Country: None (occurrence: None)
  Receive Date: 20100712
  Receipt Date: 20100702
  Transmission Date: 20110219
  Serious: Yes (Hospitalization)
  Sender: FDA-Public Use
  Company Number: TR-SANOFI-AVENTIS-2010SA038517

PATIENT

DRUGS (2)
  1. INSULIN GLARGINE [Suspect]
     Indication: DIABETIC RELATIVE
     Route: 064
     Dates: end: 20100601
  2. SOLOSTAR [Suspect]
     Dates: end: 20100601

REACTIONS (3)
  - DRUG EXPOSURE DURING PREGNANCY [None]
  - LARGE FOR DATES BABY [None]
  - RESPIRATORY FAILURE [None]
